FAERS Safety Report 6249125-9 (Version None)
Quarter: 2009Q2

REPORT INFORMATION
  Report Type: 
  Country: None (occurrence: None)
  Receive Date: 20090625
  Receipt Date: 20090618
  Transmission Date: 20091009
  Serious: Yes (Hospitalization)
  Sender: FDA-Public Use
  Company Number: TCI2009A02158

PATIENT
  Age: 7 Decade
  Sex: Male

DRUGS (2)
  1. LANSOPRAZOLE [Suspect]
     Indication: GASTRIC ULCER
     Dosage: 30 MG (30 MG, 1 IN 1 D) INJECTION
     Dates: start: 20090601, end: 20090601
  2. PROTEIN, AMINO ACID AND PREPARATIONS [Concomitant]

REACTIONS (1)
  - LUNG DISORDER [None]
